FAERS Safety Report 10170131 (Version 2)
Quarter: 2014Q2

REPORT INFORMATION
  Report Type: Report from Study
  Country: JP (occurrence: JP)
  Receive Date: 20140513
  Receipt Date: 20140529
  Transmission Date: 20141212
  Serious: Yes (Hospitalization)
  Sender: FDA-Public Use
  Company Number: JP-GLAXOSMITHKLINE-B0992418A

PATIENT
  Age: 35 Year
  Sex: Female
  Weight: 45 kg

DRUGS (2)
  1. VOTRIENT 200MG [Suspect]
     Indication: UNDIFFERENTIATED SARCOMA
     Dosage: 800MG PER DAY
     Route: 048
     Dates: start: 20121203, end: 20130129
  2. VOTRIENT 200MG [Suspect]
     Indication: UNDIFFERENTIATED SARCOMA
     Dosage: 400MG PER DAY
     Route: 048
     Dates: start: 20130212, end: 20130521

REACTIONS (2)
  - Pneumonia [Recovering/Resolving]
  - Pneumothorax [Recovering/Resolving]
